FAERS Safety Report 4653215-1 (Version None)
Quarter: 2005Q2

REPORT INFORMATION
  Report Type: 
  Country: None (occurrence: None)
  Receive Date: 20050503
  Receipt Date: 20050503
  Transmission Date: 20051028
  Serious: Yes (Other)
  Sender: FDA-Public Use
  Company Number: None

PATIENT
  Age: 66 Year
  Sex: Female

DRUGS (1)
  1. FENTANYL [Suspect]
     Dosage: 50MCG Q 72 HOURS
     Dates: start: 20050325

REACTIONS (4)
  - DIZZINESS [None]
  - PAIN [None]
  - PERFORMANCE STATUS DECREASED [None]
  - PHARMACEUTICAL PRODUCT COMPLAINT [None]
